FAERS Safety Report 4901819-0 (Version None)
Quarter: 2006Q1

REPORT INFORMATION
  Report Type: 
  Country: None (occurrence: None)
  Receive Date: 20060201
  Receipt Date: 20060201
  Transmission Date: 20060701
  Serious: Yes (Congenital Anomaly)
  Sender: FDA-Public Use
  Company Number: None

PATIENT
  Sex: Female
  Weight: 2.268 kg

DRUGS (2)
  1. ETOPOSIDE [Suspect]
     Indication: OVARIAN CANCER
     Dosage: DAILY IV DRIP 5 DAYS A WEEK -TOTAL 3 WKS
     Route: 041
  2. CISPLATIN [Suspect]
     Indication: OVARIAN CANCER
     Dosage: DAILY IV DRIP 5 DAYS A WEEK -TOTAL 3 WKS
     Route: 041

REACTIONS (2)
  - DRUG EXPOSURE DURING PREGNANCY [None]
  - PERIODONTAL CONGENITAL ANOMALY [None]
